FAERS Safety Report 4315731-1 (Version None)
Quarter: 2004Q1

REPORT INFORMATION
  Report Type: 
  Country: None (occurrence: None)
  Receive Date: 20040309
  Receipt Date: 20040219
  Transmission Date: 20041129
  Serious: Yes (Hospitalization)
  Sender: FDA-Public Use
  Company Number: 701668

PATIENT
  Age: 26 Year
  Sex: Female

DRUGS (1)
  1. AMEVIVE [Suspect]
     Indication: PSORIASIS
     Dosage: 15 MG IM
     Route: 030
     Dates: start: 20031222, end: 20030209

REACTIONS (4)
  - HEAD INJURY [None]
  - HEPATIC ENZYME INCREASED [None]
  - PANCREATITIS RELAPSING [None]
  - SYNCOPE [None]
